FAERS Safety Report 10784370 (Version 1)
Quarter: 2015Q1

REPORT INFORMATION
  Report Type: Spontaneous
  Country: US (occurrence: None)
  Receive Date: 20150209
  Receipt Date: 20150209
  Transmission Date: 20150721
  Serious: No
  Sender: FDA-Public Use
  Company Number: None

PATIENT
  Age: 57 Year
  Sex: Female
  Weight: 72.58 kg

DRUGS (1)
  1. PRAMIPEXOLE DIHYDROCHLORIDE. [Suspect]
     Active Substance: PRAMIPEXOLE DIHYDROCHLORIDE
     Indication: RESTLESS LEGS SYNDROME
     Dosage: 1 TABLET THREE TIMES DAILY TAKEN BY MOUTH
     Route: 048
     Dates: start: 20150124, end: 20150207

REACTIONS (7)
  - Product substitution issue [None]
  - Drug ineffective [None]
  - Impaired driving ability [None]
  - Dysstasia [None]
  - Product quality issue [None]
  - Insomnia [None]
  - Activities of daily living impaired [None]

NARRATIVE: CASE EVENT DATE: 20150207
